FAERS Safety Report 20663721 (Version 1)
Quarter: 2022Q2

REPORT INFORMATION
  Report Type: Report from Study
  Country: IL (occurrence: IL)
  Receive Date: 20220401
  Receipt Date: 20220401
  Transmission Date: 20220721
  Serious: Yes (Death, Other)
  Sender: FDA-Public Use
  Company Number: IL-ABBVIE-22K-082-4342270-00

PATIENT
  Age: 75 Year
  Sex: Male
  Weight: 64.8 kg

DRUGS (17)
  1. VENETOCLAX [Suspect]
     Active Substance: VENETOCLAX
     Indication: Acute myeloid leukaemia
     Dosage: 100 MG, RAMP UP
     Route: 048
     Dates: start: 20191017, end: 20191017
  2. VENETOCLAX [Suspect]
     Active Substance: VENETOCLAX
     Dosage: 200 MG, RAMP UP
     Route: 048
     Dates: start: 20191018, end: 20191020
  3. VENETOCLAX [Suspect]
     Active Substance: VENETOCLAX
     Dosage: 400 MG, INTERRUPTION, INVESTIGATOR DECISION
     Route: 048
     Dates: start: 20191021, end: 20200112
  4. VENETOCLAX [Suspect]
     Active Substance: VENETOCLAX
     Dosage: 400 MG, INTERRUPTION
     Route: 048
     Dates: start: 20200126, end: 20200206
  5. VENETOCLAX [Suspect]
     Active Substance: VENETOCLAX
     Dosage: 200 MG, DISCONTINUATION PROGRESSION OF DISEASE
     Route: 048
     Dates: start: 20200310, end: 20200505
  6. AZACITIDINE [Suspect]
     Active Substance: AZACITIDINE
     Indication: Acute myeloid leukaemia
     Dosage: CYCLE 1, 130 MG
     Route: 058
     Dates: start: 20191017, end: 20191023
  7. AZACITIDINE [Suspect]
     Active Substance: AZACITIDINE
     Dosage: CYCLE 2, 130 MG
     Route: 058
     Dates: start: 20191117, end: 20191125
  8. AZACITIDINE [Suspect]
     Active Substance: AZACITIDINE
     Dosage: CYCLE 3, 132 MG
     Route: 058
     Dates: start: 20191222, end: 20191230
  9. AZACITIDINE [Suspect]
     Active Substance: AZACITIDINE
     Dosage: CYCLE 4,66 MG MODIFICATION TO DAILY DOSE, COUNT RECOVERY (ANC, PLATELETS OR HEMOGLOBIN)
     Route: 058
     Dates: start: 20200126, end: 20200203
  10. AZACITIDINE [Suspect]
     Active Substance: AZACITIDINE
     Dosage: CYCLE 5, 66 MG
     Route: 058
     Dates: start: 20200315, end: 20200319
  11. AZACITIDINE [Suspect]
     Active Substance: AZACITIDINE
     Dosage: CYCLE 6, 1320MG
     Route: 058
     Dates: start: 20200419, end: 20200427
  12. ALLOPURINOL [Concomitant]
     Active Substance: ALLOPURINOL
     Indication: Prophylaxis
     Dates: start: 20191017, end: 20191105
  13. ASPIRIN [Concomitant]
     Active Substance: ASPIRIN
     Indication: Cardiovascular event prophylaxis
     Dates: start: 20031018
  14. LIPITOR [Concomitant]
     Active Substance: ATORVASTATIN CALCIUM
     Indication: Hypercholesterolaemia
     Dates: start: 20000301
  15. BISOPROLOL FUMARATE [Concomitant]
     Active Substance: BISOPROLOL FUMARATE
     Indication: Cardiac disorder
     Dates: start: 20181007
  16. BISOPROLOL FUMARATE [Concomitant]
     Active Substance: BISOPROLOL FUMARATE
     Indication: Hypertension
  17. ZEFIX [Concomitant]
     Active Substance: LAMIVUDINE
     Indication: Hepatitis B
     Dates: start: 20190110

REACTIONS (11)
  - Unevaluable event [Fatal]
  - Disease progression [Unknown]
  - Muscle spasms [Recovered/Resolved]
  - Tumour lysis syndrome [Recovered/Resolved]
  - Neutropenia [Recovering/Resolving]
  - Bone pain [Recovered/Resolved]
  - Asthenia [Recovered/Resolved]
  - Oropharyngeal pain [Recovered/Resolved]
  - Thrombocytopenia [Not Recovered/Not Resolved]
  - Nausea [Recovered/Resolved]
  - Dizziness [Recovered/Resolved]

NARRATIVE: CASE EVENT DATE: 20191018
